FAERS Safety Report 9062540 (Version 3)
Quarter: 2013Q1

REPORT INFORMATION
  Report Type: Spontaneous
  Country: JP (occurrence: JP)
  Receive Date: 20130128
  Receipt Date: 20130211
  Transmission Date: 20140127
  Serious: Yes (Death, Life-Threatening)
  Sender: FDA-Public Use
  Company Number: JP-BRISTOL-MYERS SQUIBB COMPANY-17315870

PATIENT
  Age: 56 Year
  Sex: Male
  Weight: 62 kg

DRUGS (11)
  1. ABILIFY TABS [Suspect]
     Indication: SCHIZOPHRENIA
     Route: 048
     Dates: start: 20121229, end: 20130101
  2. RISPERDAL [Suspect]
     Dosage: JA12-UNK:2?MR12-UNK:4?OT12-UNK:5?5NV12-11NV12:6?12NV12-24DE12:8?25DE12-28DE12:10?UNITS MG/DAY
     Route: 048
     Dates: start: 201201
  3. LEVOTOMIN [Suspect]
     Indication: SCHIZOPHRENIA
     Dosage: TABLET
     Route: 048
     Dates: end: 20130101
  4. LEXIN [Concomitant]
     Dosage: TABS
     Dates: end: 20130101
  5. TASMOLIN [Concomitant]
     Dosage: TABS
     Dates: end: 20130101
  6. TREMIN [Concomitant]
     Dosage: TABS
     Dates: end: 20130101
  7. FLUNITRAZEPAM [Concomitant]
     Dosage: TABS
     Dates: end: 20130101
  8. ZOPICOOL [Concomitant]
     Dosage: TABS
     Dates: end: 20130101
  9. TRIAZOLAM [Concomitant]
     Dosage: TABS
     Dates: end: 20130101
  10. MAGMITT [Concomitant]
     Dosage: TABS
     Dates: end: 20130101
  11. SENNOSIDE [Concomitant]
     Dates: end: 20130101

REACTIONS (4)
  - Pneumonia [Fatal]
  - Convulsion [Not Recovered/Not Resolved]
  - Neuroleptic malignant syndrome [Recovering/Resolving]
  - Ileus [Not Recovered/Not Resolved]
